FAERS Safety Report 20859190 (Version 1)
Quarter: 2022Q2

REPORT INFORMATION
  Report Type: Spontaneous
  Country: US (occurrence: US)
  Receive Date: 20220523
  Receipt Date: 20220523
  Transmission Date: 20220720
  Serious: No
  Sender: FDA-Public Use
  Company Number: US-GLENMARK PHARMACEUTICALS-2022GMK071440

PATIENT

DRUGS (1)
  1. IMIQUIMOD [Suspect]
     Active Substance: IMIQUIMOD
     Indication: Basal cell carcinoma
     Dosage: UNK, 1 FULL PACKET PER DAY
     Route: 061
     Dates: start: 20220314

REACTIONS (5)
  - Drug effective for unapproved indication [Unknown]
  - Abdominal discomfort [Unknown]
  - Influenza like illness [Unknown]
  - Pyrexia [Unknown]
  - Product packaging issue [Unknown]

NARRATIVE: CASE EVENT DATE: 20220314
